FAERS Safety Report 12522743 (Version 1)
Quarter: 2016Q3

REPORT INFORMATION
  Report Type: Spontaneous
  Country: BR (occurrence: BR)
  Receive Date: 20160701
  Receipt Date: 20160701
  Transmission Date: 20161109
  Serious: Yes (Other)
  Sender: FDA-Public Use
  Company Number: BR-BAUSCH-BL-2016-015271

PATIENT
  Age: 71 Year
  Sex: Male
  Weight: 70 kg

DRUGS (2)
  1. TIMOPTOL [Suspect]
     Active Substance: TIMOLOL
     Indication: GLAUCOMA
     Route: 047
     Dates: start: 2009, end: 2011
  2. MESALAMINE. [Suspect]
     Active Substance: MESALAMINE
     Indication: PROPHYLAXIS
     Dosage: 1 TABLET FOR 7 DAYS AND A FREE INTERVAL DURING 21 DAYS
     Route: 048
     Dates: start: 2009

REACTIONS (2)
  - Drug ineffective [Recovered/Resolved]
  - Diverticulitis [Unknown]

NARRATIVE: CASE EVENT DATE: 2011
